FAERS Safety Report 7878910-2 (Version None)
Quarter: 2011Q4

REPORT INFORMATION
  Report Type: 
  Country: None (occurrence: None)
  Receive Date: 20111101
  Receipt Date: 20111021
  Transmission Date: 20120403
  Serious: Yes (Hospitalization, Other)
  Sender: FDA-Public Use
  Company Number: CA-CELGENEUS-028-21880-11102447

PATIENT
  Sex: Male

DRUGS (13)
  1. ASPIRIN [Concomitant]
     Route: 065
  2. PANTOPRAZOLE [Concomitant]
     Dosage: 40 MILLIGRAM
     Route: 065
  3. DEXAMETHASONE [Concomitant]
     Dosage: 12 MILLIGRAM
     Route: 065
  4. FLOMAX [Concomitant]
     Dosage: .4 MILLIGRAM
     Route: 065
  5. DEXAMETHASONE [Concomitant]
     Dosage: 40 MILLIGRAM
     Route: 065
  6. HYDROMORPHONE HCL [Concomitant]
     Dosage: 18 MILLIGRAM
     Route: 065
  7. HYDROMORPHONE HCL [Concomitant]
     Dosage: 4 MILLIGRAM
     Route: 065
  8. METFORMIN HCL [Concomitant]
     Dosage: 500 MILLIGRAM
     Route: 065
  9. REVLIMID [Suspect]
     Indication: MULTIPLE MYELOMA
     Dosage: 15 MILLIGRAM
     Route: 048
  10. DEXAMETHASONE [Concomitant]
     Dosage: 8 MILLIGRAM
     Route: 065
     Dates: start: 20110901
  11. TIAZAC [Concomitant]
     Route: 065
  12. LOTRIDERM [Concomitant]
     Route: 061
  13. CRESTOR [Concomitant]
     Dosage: 10 MILLIGRAM
     Route: 065

REACTIONS (3)
  - THROMBOSIS [None]
  - BLOOD GLUCOSE INCREASED [None]
  - PNEUMONIA [None]
